FAERS Safety Report 21462080 (Version 1)
Quarter: 2022Q4

REPORT INFORMATION
  Report Type: Spontaneous
  Country: US (occurrence: None)
  Receive Date: 20221015
  Receipt Date: 20221015
  Transmission Date: 20230112
  Serious: Yes (Other)
  Sender: FDA-Public Use
  Company Number: US-ROCHE-3199607

PATIENT
  Age: 52 Year
  Sex: Male

DRUGS (1)
  1. ROZLYTREK [Suspect]
     Active Substance: ENTRECTINIB
     Indication: Thyroid cancer
     Dosage: ONGOING: YES; DAILY 200 MG
     Route: 048
     Dates: start: 202104

REACTIONS (5)
  - Skin discolouration [Unknown]
  - Pruritus [Unknown]
  - Pelvic infection [Unknown]
  - Pain in extremity [Unknown]
  - Dizziness [Unknown]

NARRATIVE: CASE EVENT DATE: 20220501
